FAERS Safety Report 7688811-0 (Version None)
Quarter: 2011Q3

REPORT INFORMATION
  Report Type: 
  Country: None (occurrence: None)
  Receive Date: 20110817
  Receipt Date: 20110808
  Transmission Date: 20111222
  Serious: Yes (Death)
  Sender: FDA-Public Use
  Company Number: US-BAXTER-2011BH024566

PATIENT
  Age: 88 Year
  Sex: Male
  Weight: 81 kg

DRUGS (1)
  1. FEIBA VH [Suspect]
     Indication: FACTOR VIII INHIBITION
     Route: 065
     Dates: start: 20060301, end: 20090101

REACTIONS (3)
  - REFUSAL OF TREATMENT BY PATIENT [None]
  - ANAEMIA [None]
  - DYSPNOEA [None]
